FAERS Safety Report 13534573 (Version 2)
Quarter: 2017Q2

REPORT INFORMATION
  Report Type: Report from Study
  Country: AU (occurrence: AU)
  Receive Date: 20170511
  Receipt Date: 20170524
  Transmission Date: 20170830
  Serious: Yes (Death, Hospitalization, Other)
  Sender: FDA-Public Use
  Company Number: AU-SUN PHARMACEUTICAL INDUSTRIES LTD-2017RR-139925

PATIENT
  Age: 92 Year
  Sex: Female

DRUGS (3)
  1. BUPRENORPHINE. [Suspect]
     Active Substance: BUPRENORPHINE
     Indication: PAIN
     Dosage: 200 ?G, UNK
     Route: 060
  2. PARACETAMOL/ CODEINE PHOSPHATE [Concomitant]
     Indication: PAIN
     Dosage: 1G/60MG
     Route: 065
  3. IBUPROFEN. [Concomitant]
     Active Substance: IBUPROFEN
     Indication: PAIN
     Dosage: 200 MG, UNK
     Route: 065

REACTIONS (2)
  - Respiratory depression [Fatal]
  - Nervous system disorder [Fatal]
